FAERS Safety Report 12195496 (Version 1)
Quarter: 2016Q1

REPORT INFORMATION
  Report Type: Spontaneous
  Country: US (occurrence: US)
  Receive Date: 20160321
  Receipt Date: 20160321
  Transmission Date: 20160526
  Serious: No
  Sender: FDA-Public Use
  Company Number: US-BRISTOL-MYERS SQUIBB COMPANY-BMS-2016-017905

PATIENT
  Sex: Female

DRUGS (2)
  1. OPDIVO [Suspect]
     Active Substance: NIVOLUMAB
     Indication: GASTRIC CANCER
  2. OPDIVO [Suspect]
     Active Substance: NIVOLUMAB
     Indication: LUNG NEOPLASM MALIGNANT
     Route: 042

REACTIONS (6)
  - Musculoskeletal pain [Not Recovered/Not Resolved]
  - Abdominal pain upper [Unknown]
  - Visual acuity reduced [Unknown]
  - Cholelithiasis [Unknown]
  - Weight decreased [Unknown]
  - Diarrhoea [Recovering/Resolving]
